FAERS Safety Report 5697137-6 (Version None)
Quarter: 2008Q2

REPORT INFORMATION
  Report Type: 
  Country: None (occurrence: None)
  Receive Date: 20080408
  Receipt Date: 20080327
  Transmission Date: 20081010
  Serious: Yes (Hospitalization, Other)
  Sender: FDA-Public Use
  Company Number: FR-ELI_LILLY_AND_COMPANY-FR200801003801

PATIENT
  Age: 70 Year
  Sex: Male
  Weight: 61 kg

DRUGS (8)
  1. GEMZAR [Suspect]
     Indication: LUNG SQUAMOUS CELL CARCINOMA STAGE UNSPECIFIED
     Dosage: 1250 MG/M2, OTHER
     Route: 042
     Dates: start: 20071221, end: 20071221
  2. PEMETREXED [Suspect]
     Indication: LUNG SQUAMOUS CELL CARCINOMA STAGE UNSPECIFIED
     Dosage: UNK, UNKNOWN
     Route: 042
     Dates: start: 20070828, end: 20071030
  3. ALLOCHRYSINE [Concomitant]
     Indication: POLYARTHRITIS
     Dosage: UNK, UNKNOWN
     Route: 065
  4. LASILIX [Concomitant]
     Dosage: 40 MG, DAILY (1/D)
     Route: 065
  5. RAMIPRIL [Concomitant]
     Dosage: 2.5 MG, DAILY (1/D)
     Route: 065
  6. BUSPAR [Concomitant]
     Dosage: 1 D/F, DAILY (1/D)
     Route: 065
  7. IMOVANE [Concomitant]
     Dosage: 1 D/F, DAILY (1/D)
     Route: 065
  8. SYMBICORT [Concomitant]
     Dosage: 800 MG, DAILY (1/D)
     Route: 065

REACTIONS (5)
  - AORTIC VALVE STENOSIS [None]
  - CANDIDA SEROLOGY POSITIVE [None]
  - MALIGNANT NEOPLASM PROGRESSION [None]
  - MYOCARDITIS [None]
  - PULMONARY OEDEMA [None]
